FAERS Safety Report 13515520 (Version 1)
Quarter: 2017Q2

REPORT INFORMATION
  Report Type: Spontaneous
  Country: FR (occurrence: FR)
  Receive Date: 20170504
  Receipt Date: 20170504
  Transmission Date: 20170830
  Serious: Yes (Hospitalization)
  Sender: FDA-Public Use
  Company Number: FR-ABBVIE-03P-056-0209053-00

PATIENT
  Age: 58 Year
  Sex: Male

DRUGS (6)
  1. LIPANOR [Concomitant]
     Active Substance: CIPROFIBRATE
     Indication: HYPERTRIGLYCERIDAEMIA
     Route: 048
     Dates: end: 200310
  2. SOLIAN [Concomitant]
     Active Substance: AMISULPRIDE
     Indication: BIPOLAR I DISORDER
     Route: 048
     Dates: end: 20030103
  3. DEPAKOTE [Suspect]
     Active Substance: DIVALPROEX SODIUM
     Indication: BIPOLAR I DISORDER
     Route: 048
     Dates: start: 200203, end: 20030116
  4. LIOTHYRONINE [Concomitant]
     Active Substance: LIOTHYRONINE
     Indication: PRODUCT USED FOR UNKNOWN INDICATION
     Route: 048
     Dates: end: 200301
  5. TERCIAN [Concomitant]
     Active Substance: CYAMEMAZINE
     Indication: INSOMNIA
     Route: 048
  6. MEDIATOR [Concomitant]
     Active Substance: BENFLUOREX
     Indication: PRODUCT USED FOR UNKNOWN INDICATION
     Route: 048
     Dates: end: 200310

REACTIONS (17)
  - Cerebellar atrophy [Recovered/Resolved]
  - Ammonia increased [Recovered/Resolved]
  - Metabolic encephalopathy [Recovered/Resolved]
  - Abnormal behaviour [Recovered/Resolved]
  - Confusional state [Recovered/Resolved]
  - Cerebral ventricle dilatation [Recovered/Resolved]
  - Anxiety [Recovered/Resolved]
  - Bradyphrenia [Recovered/Resolved]
  - Anterograde amnesia [Recovered/Resolved]
  - Memory impairment [Recovered/Resolved]
  - Cerebral atrophy [Recovered/Resolved]
  - Hyperammonaemia [Recovered/Resolved]
  - Hypertonia [Recovered/Resolved]
  - Disorientation [Recovered/Resolved]
  - Electroencephalogram abnormal [Recovered/Resolved]
  - Parkinson^s disease [Recovered/Resolved]
  - Extrapyramidal disorder [Recovered/Resolved]

NARRATIVE: CASE EVENT DATE: 200210
